FAERS Safety Report 22254075 (Version 1)
Quarter: 2023Q2

REPORT INFORMATION
  Report Type: Spontaneous
  Country: NL (occurrence: NL)
  Receive Date: 20230426
  Receipt Date: 20230426
  Transmission Date: 20230721
  Serious: Yes (Death, Life-Threatening, Hospitalization)
  Sender: FDA-Public Use
  Company Number: None

PATIENT
  Sex: Male
  Weight: 80 kg

DRUGS (5)
  1. PIRFENIDONE [Suspect]
     Active Substance: PIRFENIDONE
     Indication: Idiopathic pulmonary fibrosis
     Dosage: STRENGTH: 267 MG,3X P DAY 3 PIECES; ON 14-2-23 REDUCED TO 3D2 PIECE
     Dates: start: 20230130, end: 20230303
  2. ACETAMINOPHEN [Suspect]
     Active Substance: ACETAMINOPHEN
     Indication: Pain
     Dosage: STRENGTH: 500 MG,3 X PER DAY 2 PIECES
     Dates: start: 20170501
  3. RIVAROXABAN [Suspect]
     Active Substance: RIVAROXABAN
     Indication: Pulmonary embolism
     Dosage: STRENGTH: 20 MG, 1DD20MG
     Dates: start: 20220520
  4. ACETYLCYSTEINE [Concomitant]
     Active Substance: ACETYLCYSTEINE
     Dosage: STRENGTH: 200 MG/ML, SOLUTION FOR INFUSION, 200 MG/ML (MILLIGRAMS PER MILLILITER)
  5. DEXTROSE [Concomitant]
     Active Substance: DEXTROSE\DEXTROSE MONOHYDRATE
     Dosage: STRENGTH: 100 MG/ML, SOLUTION FOR INFUSION, 100 MG/ML (MILLIGRAMS PER MILLILITER)

REACTIONS (1)
  - Acute hepatic failure [Fatal]
